FAERS Safety Report 13175198 (Version 1)
Quarter: 2017Q1

REPORT INFORMATION
  Report Type: Spontaneous
  Country: US (occurrence: US)
  Receive Date: 20170201
  Receipt Date: 20170201
  Transmission Date: 20170428
  Serious: No
  Sender: FDA-Public Use
  Company Number: US-HORIZON-PRE-0014-2017

PATIENT
  Sex: Male

DRUGS (1)
  1. RAYOS [Suspect]
     Active Substance: PREDNISONE
     Route: 064
     Dates: start: 201608

REACTIONS (2)
  - Hypersensitivity [Unknown]
  - Foetal exposure during pregnancy [Unknown]
